FAERS Safety Report 10529785 (Version 1)
Quarter: 2014Q4

REPORT INFORMATION
  Report Type: Spontaneous
  Country: US (occurrence: None)
  Receive Date: 20141020
  Receipt Date: 20141020
  Transmission Date: 20150528
  Serious: Yes (Hospitalization, Disabling)
  Sender: FDA-Public Use
  Company Number: None

PATIENT
  Age: 58 Year
  Sex: Female
  Weight: 185 kg

DRUGS (4)
  1. LEXEPRO [Concomitant]
  2. THYROID [Concomitant]
     Active Substance: LEVOTHYROXINE\LIOTHYRONINE
  3. PROLIA [Suspect]
     Active Substance: DENOSUMAB
     Indication: BONE DENSITY ABNORMAL
     Dosage: 1 SHOT  INJECTION
     Dates: start: 20140622
  4. CALCITREL [Concomitant]

REACTIONS (2)
  - Hypoaesthesia oral [None]
  - Muscle spasms [None]

NARRATIVE: CASE EVENT DATE: 20140622
